FAERS Safety Report 10180182 (Version 1)
Quarter: 2014Q2

REPORT INFORMATION
  Report Type: Spontaneous
  Country: US (occurrence: US)
  Receive Date: 20140519
  Receipt Date: 20140519
  Transmission Date: 20141212
  Serious: Yes (Other)
  Sender: FDA-Public Use
  Company Number: US-ABBVIE-14P-163-1236211-00

PATIENT
  Sex: Female

DRUGS (1)
  1. HUMIRA [Suspect]
     Indication: CROHN^S DISEASE
     Route: 058
     Dates: start: 201301, end: 2014

REACTIONS (4)
  - Convulsion [Unknown]
  - Convulsion [Unknown]
  - Convulsion [Unknown]
  - Electroencephalogram abnormal [Unknown]
